FAERS Safety Report 5336779-4 (Version None)
Quarter: 2007Q2

REPORT INFORMATION
  Report Type: 
  Country: None (occurrence: None)
  Receive Date: 20070529
  Receipt Date: 20070517
  Transmission Date: 20071010
  Serious: Yes (Life-Threatening)
  Sender: FDA-Public Use
  Company Number: JP-ROCHE-494106

PATIENT
  Age: 11 Year
  Sex: Male
  Weight: 27 kg

DRUGS (6)
  1. TAMIFLU [Suspect]
     Dosage: FORM REPORTED AS DRY SYRUP.
     Route: 048
     Dates: start: 20070319, end: 20070319
  2. TRANSAMIN [Concomitant]
     Route: 048
     Dates: start: 20070319, end: 20070330
  3. BERACHIN [Concomitant]
     Route: 048
     Dates: start: 20070319, end: 20070330
  4. TELGIN G [Concomitant]
     Route: 048
     Dates: start: 20070319, end: 20070330
  5. MUCODYNE [Concomitant]
     Route: 048
     Dates: start: 20070319, end: 20070330
  6. CALONAL [Concomitant]
     Dosage: DOSE FORM REPORTED AS ORAL FORMULATION (NOT OTHERWISE SPECIFIED)
     Route: 048

REACTIONS (1)
  - ABNORMAL BEHAVIOUR [None]
